FAERS Safety Report 14788924 (Version 2)
Quarter: 2019Q1

REPORT INFORMATION
  Report Type: Report from Study
  Country: None (occurrence: BR)
  Receive Date: 20180423
  Receipt Date: 20190328
  Transmission Date: 20190417
  Serious: Yes (Disabling, Other)
  Sender: FDA-Public Use
  Company Number: BR-ABBVIE-18K-020-2329702-00

PATIENT
  Sex: Female
  Weight: 42 kg

DRUGS (1)
  1. HUMIRA [Suspect]
     Active Substance: ADALIMUMAB
     Indication: RHEUMATOID ARTHRITIS
     Route: 058
     Dates: start: 20170704

REACTIONS (28)
  - Vision blurred [Unknown]
  - Dental restoration failure [Unknown]
  - Weight decreased [Recovering/Resolving]
  - Muscular weakness [Not Recovered/Not Resolved]
  - Hepatic enzyme abnormal [Not Recovered/Not Resolved]
  - Joint swelling [Not Recovered/Not Resolved]
  - Pain in extremity [Unknown]
  - Osteoporosis [Not Recovered/Not Resolved]
  - Osteoarthritis [Not Recovered/Not Resolved]
  - Depression [Recovering/Resolving]
  - Musculoskeletal stiffness [Not Recovered/Not Resolved]
  - Pain [Not Recovered/Not Resolved]
  - Night blindness [Not Recovered/Not Resolved]
  - Hand deformity [Recovering/Resolving]
  - Mass [Not Recovered/Not Resolved]
  - Foot deformity [Recovering/Resolving]
  - Psychiatric symptom [Unknown]
  - Articular calcification [Not Recovered/Not Resolved]
  - Tremor [Unknown]
  - Cerebral disorder [Unknown]
  - Drug ineffective [Not Recovered/Not Resolved]
  - Renal pain [Unknown]
  - Gait inability [Unknown]
  - Elbow deformity [Recovering/Resolving]
  - Hypoaesthesia [Not Recovered/Not Resolved]
  - Crying [Unknown]
  - Fall [Unknown]
  - Hypoaesthesia [Not Recovered/Not Resolved]

NARRATIVE: CASE EVENT DATE: 2017
